FAERS Safety Report 9465065 (Version 1)
Quarter: 2013Q3

REPORT INFORMATION
  Report Type: Spontaneous
  Country: US (occurrence: US)
  Receive Date: 20130819
  Receipt Date: 20130819
  Transmission Date: 20140515
  Serious: Yes (Other)
  Sender: FDA-Public Use
  Company Number: US-TEVA-426342USA

PATIENT
  Age: 62 Year
  Sex: Female

DRUGS (3)
  1. PAROXETINE [Suspect]
     Indication: ANXIETY
     Dosage: 10 MILLIGRAM DAILY;
     Route: 065
  2. ZOLPIDEM [Interacting]
     Indication: INSOMNIA
     Dosage: 10 MILLIGRAM DAILY; NIGHTLY
     Route: 065
  3. ZOLPIDEM [Interacting]
     Indication: INSOMNIA
     Dosage: 2 OR 3 X 10MG PILLS ON NIGHT BEFORE HOMICIDE, THEN 1 OR MORE ADDITIONAL PILLS
     Route: 065

REACTIONS (6)
  - Drug interaction [Unknown]
  - Overdose [Unknown]
  - Major depression [Unknown]
  - Delirium [Unknown]
  - Homicide [Unknown]
  - Suicidal behaviour [Unknown]
